FAERS Safety Report 19161523 (Version 3)
Quarter: 2021Q4

REPORT INFORMATION
  Report Type: Spontaneous
  Country: JP (occurrence: JP)
  Receive Date: 20210421
  Receipt Date: 20211118
  Transmission Date: 20220303
  Serious: Yes (Hospitalization, Other)
  Sender: FDA-Public Use
  Company Number: JP-TAKEDA-2021TJP017285

PATIENT
  Age: 54 Year
  Sex: Female

DRUGS (5)
  1. NINLARO [Suspect]
     Active Substance: IXAZOMIB CITRATE
     Indication: Plasma cell myeloma
     Dosage: 3 MILLIGRAM
     Route: 048
     Dates: start: 20191126
  2. NINLARO [Suspect]
     Active Substance: IXAZOMIB CITRATE
     Dosage: 2.3 MILLIGRAM
     Route: 048
     Dates: start: 201912, end: 202001
  3. NINLARO [Suspect]
     Active Substance: IXAZOMIB CITRATE
     Dosage: 2.3 MILLIGRAM
     Route: 048
     Dates: start: 202101
  4. REVLIMID [Concomitant]
     Active Substance: LENALIDOMIDE
     Dosage: UNK
     Route: 065
  5. POMALYST [Concomitant]
     Active Substance: POMALIDOMIDE
     Dosage: UNK
     Route: 065

REACTIONS (4)
  - Neutrophil count decreased [Recovering/Resolving]
  - Myelosuppression [Unknown]
  - Pneumonia [Recovered/Resolved]
  - Peripheral sensory neuropathy [Not Recovered/Not Resolved]

NARRATIVE: CASE EVENT DATE: 20200104
